FAERS Safety Report 20493475 (Version 2)
Quarter: 2022Q1

REPORT INFORMATION
  Report Type: Spontaneous
  Country: JP (occurrence: JP)
  Receive Date: 20220220
  Receipt Date: 20220223
  Transmission Date: 20220424
  Serious: Yes (Death, Life-Threatening, Hospitalization, Congenital Anomaly, Other)
  Sender: FDA-Public Use
  Company Number: None

PATIENT
  Sex: Female

DRUGS (4)
  1. PREDNISOLONE [Suspect]
     Active Substance: PREDNISOLONE
     Indication: Product used for unknown indication
     Dosage: 5 MILLIGRAM PER DAY
     Route: 064
  2. PREDNISOLONE [Suspect]
     Active Substance: PREDNISOLONE
     Dosage: 15 MILLIGRAM PER DAY
     Route: 064
  3. AZATHIOPRINE [Suspect]
     Active Substance: AZATHIOPRINE
     Indication: Product used for unknown indication
     Dosage: 75 MILLIGRAM PER DAY
     Route: 064
  4. HYDROXYCHLOROQUINE [Suspect]
     Active Substance: HYDROXYCHLOROQUINE
     Indication: Product used for unknown indication
     Dosage: 200 MILLIGRAM PER DAY
     Route: 064

REACTIONS (11)
  - Stillbirth [Fatal]
  - Cerebral ventricle dilatation [Unknown]
  - Hypertrophy [Unknown]
  - Ascites [Unknown]
  - Gastrointestinal disorder [Unknown]
  - Placental calcification [Unknown]
  - Microcephaly [Unknown]
  - Congenital cytomegalovirus infection [Unknown]
  - Foetal exposure during pregnancy [Unknown]
  - Cerebellar hypoplasia [Unknown]
  - Gastrointestinal disorder congenital [Unknown]
